FAERS Safety Report 9256927 (Version 1)
Quarter: 2013Q2

REPORT INFORMATION
  Report Type: Spontaneous
  Country: US (occurrence: None)
  Receive Date: 20130423
  Receipt Date: 20130423
  Transmission Date: 20140414
  Serious: Yes (Life-Threatening, Hospitalization)
  Sender: FDA-Public Use
  Company Number: 147570

PATIENT
  Age: 16 Year
  Sex: Male
  Weight: 102 kg

DRUGS (1)
  1. ETOPOSIDE [Suspect]
     Indication: RHABDOMYOSARCOMA
     Dosage: UNK; TOTAL DOSE OF 1090 MG (LAST DOSE)
     Dates: end: 20121221

REACTIONS (14)
  - Sepsis [None]
  - Pulmonary oedema [None]
  - Left ventricular dysfunction [None]
  - Febrile neutropenia [None]
  - Enterocolitis infectious [None]
  - Rectal haemorrhage [None]
  - Urinary tract infection fungal [None]
  - Urine output decreased [None]
  - Respiratory distress [None]
  - Clostridium test positive [None]
  - Candiduria [None]
  - Fluid overload [None]
  - Shock [None]
  - Cardiac failure [None]
